FAERS Safety Report 6362293-3 (Version None)
Quarter: 2009Q3

REPORT INFORMATION
  Report Type: 
  Country: None (occurrence: None)
  Receive Date: 20090918
  Receipt Date: 20090804
  Transmission Date: 20100115
  Serious: No
  Sender: FDA-Public Use
  Company Number: US-ABBOTT-09P-163-0589773-00

PATIENT
  Sex: Female
  Weight: 90.8 kg

DRUGS (3)
  1. HUMIRA [Suspect]
     Indication: RHEUMATOID ARTHRITIS
     Dosage: HUMIRA PRE-FILLED SYRINGE
     Route: 058
     Dates: start: 20070701, end: 20090601
  2. HUMIRA [Suspect]
     Route: 058
     Dates: start: 20090621, end: 20090719
  3. PREDNISONE [Concomitant]
     Indication: PSORIASIS
     Dosage: TAPER

REACTIONS (11)
  - ARTHRALGIA [None]
  - ARTHROPATHY [None]
  - DRUG DOSE OMISSION [None]
  - GAIT DISTURBANCE [None]
  - JOINT SWELLING [None]
  - MUSCULOSKELETAL PAIN [None]
  - PSORIASIS [None]
  - RASH MACULAR [None]
  - RHEUMATOID ARTHRITIS [None]
  - SKIN DISCOLOURATION [None]
  - SKIN EXFOLIATION [None]
